FAERS Safety Report 16308583 (Version 1)
Quarter: 2019Q2

REPORT INFORMATION
  Report Type: Spontaneous
  Country: US (occurrence: US)
  Receive Date: 20190408
  Receipt Date: 20190408
  Transmission Date: 20190711
  Serious: No
  Sender: FDA-Public Use
  Company Number: None

PATIENT
  Age: 55 Year
  Sex: Male

DRUGS (1)
  1. AFINITOR [Suspect]
     Active Substance: EVEROLIMUS
     Dates: start: 201810

REACTIONS (4)
  - Neoplasm malignant [None]
  - Blood iron decreased [None]
  - Lung neoplasm malignant [None]
  - Visual impairment [None]

NARRATIVE: CASE EVENT DATE: 20190408
